FAERS Safety Report 6608878-8 (Version None)
Quarter: 2010Q1

REPORT INFORMATION
  Report Type: 
  Country: None (occurrence: None)
  Receive Date: 20100301
  Receipt Date: 20100215
  Transmission Date: 20100710
  Serious: Yes (Other)
  Sender: FDA-Public Use
  Company Number: NL-MYLANLABS-2010S1002435

PATIENT
  Age: 70 Year
  Sex: Male

DRUGS (20)
  1. GENTAMICIN [Suspect]
     Dosage: 120 GENTAMICIN BEADS IMPLANTED INTO L HIP ON DAY 162
     Route: 014
  2. FUROSEMIDE [Suspect]
     Route: 042
  3. FUROSEMIDE [Suspect]
     Route: 042
  4. CEFTAZIDIME [Concomitant]
     Route: 042
  5. FLOXACILLIN SODIUM [Concomitant]
     Route: 042
  6. CIPROFLOXACIN [Concomitant]
     Route: 042
  7. POTASSIUM CHLORIDE [Concomitant]
     Route: 042
  8. POTASSIUM CHLORIDE [Concomitant]
     Route: 048
  9. METOCLOPRAMIDE HYDROCHLORIDE [Concomitant]
     Route: 042
  10. BUPRENORPHINE [Concomitant]
     Dosage: 70 MICROG/H TRANSDERMAL PATCH EVERY 3D
     Route: 062
  11. MIDAZOLAM HCL [Concomitant]
     Route: 042
  12. DALTEPARIN SODIUM [Concomitant]
     Dosage: SC DALTEPARIN SODIUM 7500 IE TWICE DAILY
     Route: 058
  13. FENTANYL-100 [Concomitant]
     Route: 042
  14. OLANZAPINE [Concomitant]
     Route: 048
  15. OLANZAPINE [Concomitant]
     Route: 048
  16. ACENOCOUMAROL [Concomitant]
     Route: 048
  17. NOREPINEPHRINE [Concomitant]
     Route: 042
  18. GABAPENTIN [Concomitant]
     Route: 048
  19. GABAPENTIN [Concomitant]
     Route: 048
  20. SPIRONOLACTONE [Concomitant]
     Route: 048

REACTIONS (2)
  - DEAFNESS NEUROSENSORY [None]
  - OTOTOXICITY [None]
